FAERS Safety Report 4472547-3 (Version None)
Quarter: 2004Q4

REPORT INFORMATION
  Report Type: 
  Country: None (occurrence: None)
  Receive Date: 20041008
  Receipt Date: 20040924
  Transmission Date: 20050328
  Serious: Yes (Other)
  Sender: FDA-Public Use
  Company Number: 2004070895

PATIENT
  Age: 74 Year
  Sex: Female

DRUGS (6)
  1. LIPITOR [Suspect]
     Indication: BLOOD CHOLESTEROL
     Dosage: 10 MG (10 MG, 1 IN 1 D), ORAL
     Route: 048
     Dates: start: 20010101, end: 20040918
  2. DIURETICS (DIURETICS) [Suspect]
     Indication: ILL-DEFINED DISORDER
     Dates: end: 20040101
  3. WARFARIN (WARFARIN) [Concomitant]
  4. TRIOBE (CYANOCOBALAMIN, FOLIC ACID, PYRIDOXINE) [Concomitant]
  5. RAMIPRIL [Concomitant]
  6. ATENOLOL [Concomitant]

REACTIONS (22)
  - ARTHRALGIA [None]
  - ASTHENIA [None]
  - BLOOD PRESSURE INCREASED [None]
  - BODY HEIGHT DECREASED [None]
  - BONE PAIN [None]
  - DEHYDRATION [None]
  - DIFFICULTY IN WALKING [None]
  - DIZZINESS [None]
  - DYSPEPSIA [None]
  - DYSPNOEA [None]
  - GASTRIC DISORDER [None]
  - HEADACHE [None]
  - LIVER DISORDER [None]
  - MUSCLE DISORDER [None]
  - MUSCULAR WEAKNESS [None]
  - MYALGIA [None]
  - PAIN IN EXTREMITY [None]
  - RENAL DISORDER [None]
  - RESTLESS LEGS SYNDROME [None]
  - SCIATICA [None]
  - SLEEP DISORDER [None]
  - THROMBOSIS [None]
